FAERS Safety Report 5643174-7 (Version None)
Quarter: 2008Q1

REPORT INFORMATION
  Report Type: 
  Country: None (occurrence: None)
  Receive Date: 20080228
  Receipt Date: 20080215
  Transmission Date: 20080703
  Serious: Yes (Hospitalization)
  Sender: FDA-Public Use
  Company Number: HU-JNJFOC-20080204500

PATIENT
  Age: 50 Year
  Sex: Female

DRUGS (4)
  1. REMICADE [Suspect]
     Route: 042
  2. REMICADE [Suspect]
     Indication: CROHN'S DISEASE
     Route: 042
  3. MERCAPTOPURINE [Suspect]
     Indication: CROHN'S DISEASE
  4. METHYLPREDNISOLONE [Suspect]
     Indication: CROHN'S DISEASE

REACTIONS (2)
  - LISTERIA ENCEPHALITIS [None]
  - PULMONARY EMBOLISM [None]
